FAERS Safety Report 5841813-9 (Version None)
Quarter: 2008Q3

REPORT INFORMATION
  Report Type: 
  Country: None (occurrence: None)
  Receive Date: 20080812
  Receipt Date: 20080807
  Transmission Date: 20090109
  Serious: Yes (Other)
  Sender: FDA-Public Use
  Company Number: A0742246A

PATIENT
  Age: 84 Year
  Sex: Female
  Weight: 72 kg

DRUGS (4)
  1. AVANDIA [Suspect]
     Dosage: 4MG PER DAY
     Route: 048
     Dates: start: 20071105, end: 20080609
  2. LASIX [Concomitant]
     Dosage: 40MG PER DAY
     Dates: start: 20030801
  3. REPAGLINIDE [Concomitant]
     Dates: start: 20060801, end: 20080301
  4. JANUVIA [Concomitant]
     Dates: start: 20080201

REACTIONS (2)
  - APNOEA [None]
  - PLEURAL EFFUSION [None]
